FAERS Safety Report 5631224-3 (Version None)
Quarter: 2008Q1

REPORT INFORMATION
  Report Type: 
  Country: None (occurrence: None)
  Receive Date: 20080219
  Receipt Date: 20080214
  Transmission Date: 20080703
  Serious: Yes (Hospitalization, Other)
  Sender: FDA-Public Use
  Company Number: US-BRISTOL-MYERS SQUIBB COMPANY-14076459

PATIENT
  Age: 40 Year
  Sex: Female
  Weight: 77 kg

DRUGS (8)
  1. ABILIFY [Suspect]
     Indication: SCHIZOPHRENIA
     Dosage: 11DEC07-30MG, 20DEC07-15MG, 27DEC07-45MG, 29DEC07-60MG.
     Dates: start: 20071227
  2. PALIPERIDONE [Suspect]
     Indication: SCHIZOPHRENIA
     Route: 048
     Dates: start: 20071211
  3. CYMBALTA [Concomitant]
     Indication: DEPRESSION
     Dates: start: 20060101
  4. CELEXA [Concomitant]
     Dates: start: 20010101
  5. KLONOPIN [Concomitant]
     Dates: start: 20071101
  6. LEVOTHYROXINE SODIUM [Concomitant]
  7. AMBIEN [Concomitant]
     Dates: start: 20071228
  8. NEURONTIN [Concomitant]
     Dates: start: 20071228

REACTIONS (2)
  - GENERALISED OEDEMA [None]
  - PSYCHOTIC DISORDER [None]
